FAERS Safety Report 13935359 (Version 1)
Quarter: 2017Q3

REPORT INFORMATION
  Report Type: Spontaneous
  Country: US (occurrence: US)
  Receive Date: 20170901
  Receipt Date: 20170901
  Transmission Date: 20171127
  Serious: Yes (Other)
  Sender: FDA-Public Use
  Company Number: None

PATIENT
  Age: 66 Year
  Sex: Female
  Weight: 76.5 kg

DRUGS (11)
  1. PREDNEZONE [Concomitant]
  2. SUDAFED [Concomitant]
     Active Substance: PSEUDOEPHEDRINE HYDROCHLORIDE
  3. SINGULAIR [Concomitant]
     Active Substance: MONTELUKAST SODIUM
  4. ASTROVASTIN [Concomitant]
  5. SYMBOLCORT [Concomitant]
  6. ALBUTEROL. [Concomitant]
     Active Substance: ALBUTEROL
  7. METHOTREXATE. [Concomitant]
     Active Substance: METHOTREXATE
  8. CLARITIN [Concomitant]
     Active Substance: LORATADINE
  9. POTASSIUM [Concomitant]
     Active Substance: POTASSIUM
  10. OXYBUTYNIN [Suspect]
     Active Substance: OXYBUTYNIN
     Indication: URINARY INCONTINENCE
     Dosage: ?          QUANTITY:1 TABLET(S);?3 TIMES A DAY ORAL
     Route: 048
     Dates: start: 20120930, end: 20141111
  11. INTERSTEM [Concomitant]

REACTIONS (3)
  - Alopecia [None]
  - Onychoclasis [None]
  - Tooth loss [None]

NARRATIVE: CASE EVENT DATE: 20120930
